FAERS Safety Report 4685347-6 (Version None)
Quarter: 2005Q2

REPORT INFORMATION
  Report Type: 
  Country: None (occurrence: None)
  Receive Date: 20050608
  Receipt Date: 20050309
  Transmission Date: 20051028
  Serious: Yes (Hospitalization)
  Sender: FDA-Public Use
  Company Number: US-MERCK-0503USA01776

PATIENT
  Age: 74 Year
  Sex: Male
  Weight: 55 kg

DRUGS (8)
  1. VIOXX [Suspect]
     Indication: ARTHRALGIA
     Route: 048
     Dates: start: 20020207, end: 20041012
  2. VIOXX [Suspect]
     Indication: BACK PAIN
     Route: 048
     Dates: start: 20020207, end: 20041012
  3. NORVASC [Concomitant]
     Route: 065
     Dates: start: 20020101
  4. HYDRODIURIL [Concomitant]
     Indication: CARDIAC DISORDER
     Route: 065
     Dates: start: 20020101
  5. MOTRIN [Concomitant]
     Indication: BACK PAIN
     Route: 065
     Dates: start: 19970101
  6. MOTRIN [Concomitant]
     Indication: ARTHRALGIA
     Route: 065
     Dates: start: 19970101
  7. ADVIL [Concomitant]
     Indication: BACK PAIN
     Route: 065
     Dates: start: 19970101
  8. ADVIL [Concomitant]
     Indication: ARTHRALGIA
     Route: 065
     Dates: start: 19970101

REACTIONS (12)
  - ANXIETY [None]
  - ATRIOVENTRICULAR BLOCK FIRST DEGREE [None]
  - BLOOD CHOLESTEROL INCREASED [None]
  - CHEST PAIN [None]
  - CONSTIPATION [None]
  - DYSPNOEA EXERTIONAL [None]
  - GASTRIC DISORDER [None]
  - HYPERTENSION [None]
  - INTESTINAL OBSTRUCTION [None]
  - MYOCARDIAL INFARCTION [None]
  - SUPRAVENTRICULAR EXTRASYSTOLES [None]
  - VENTRICULAR EXTRASYSTOLES [None]
